FAERS Safety Report 8873081 (Version 1)
Quarter: 2012Q4

REPORT INFORMATION
  Report Type: Spontaneous
  Country: US (occurrence: None)
  Receive Date: 20121026
  Receipt Date: 20121026
  Transmission Date: 20130627
  Serious: Yes (Life-Threatening)
  Sender: FDA-Public Use
  Company Number: None

PATIENT
  Age: 25 Year
  Sex: Female

DRUGS (1)
  1. HOMEOPATHY [Suspect]
     Indication: HOMEOPATHY

REACTIONS (6)
  - Self-injurious ideation [None]
  - Grand mal convulsion [None]
  - Convulsive threshold lowered [None]
  - Hyponatraemia [None]
  - Liver function test abnormal [None]
  - Mental disorder [None]
